FAERS Safety Report 8368849-0 (Version None)
Quarter: 2012Q2

REPORT INFORMATION
  Report Type: 
  Country: None (occurrence: None)
  Receive Date: 20120516
  Receipt Date: 20120430
  Transmission Date: 20120825
  Serious: Yes (Other)
  Sender: FDA-Public Use
  Company Number: JPI-P-014899

PATIENT
  Age: 38 Year
  Sex: Female
  Weight: 105.6881 kg

DRUGS (11)
  1. AMLODIPINE BESYLATE [Concomitant]
  2. PANTOPRAZOLE [Concomitant]
  3. VITAMIN TAB [Concomitant]
  4. TRIMETHOBENZAMIDE HCL [Concomitant]
  5. RIZATRIPTAN BENZOATE [Concomitant]
  6. XYREM [Suspect]
     Indication: CATAPLEXY
     Dosage: 4.5 GM (2.25 GM, 2 IN 1 D), ORAL 7.5 GM (3.75 GM, 2 IN 1 D), ORAL
     Route: 048
     Dates: start: 20110101, end: 20120408
  7. XYREM [Suspect]
     Indication: CATAPLEXY
     Dosage: 4.5 GM (2.25 GM, 2 IN 1 D), ORAL 7.5 GM (3.75 GM, 2 IN 1 D), ORAL
     Route: 048
     Dates: start: 20110401, end: 20110101
  8. METOPROLOL SUCCINATE [Concomitant]
  9. TRMIETHOPRIM AND SULFAMETHOXAZOLE [Concomitant]
  10. ARMODAFINIL [Concomitant]
  11. TRAMADOL HYDROCHLORIDE [Concomitant]

REACTIONS (10)
  - PALPITATIONS [None]
  - HEADACHE [None]
  - HYPERTENSION [None]
  - HEART RATE INCREASED [None]
  - MIGRAINE [None]
  - NAUSEA [None]
  - GASTROOESOPHAGEAL REFLUX DISEASE [None]
  - VOMITING [None]
  - FEELING ABNORMAL [None]
  - ASTHMA [None]
